FAERS Safety Report 11097089 (Version 3)
Quarter: 2017Q3

REPORT INFORMATION
  Report Type: Report from Study
  Country: US (occurrence: US)
  Receive Date: 20150507
  Receipt Date: 20170710
  Transmission Date: 20171127
  Serious: Yes (Other)
  Sender: FDA-Public Use
  Company Number: US-SA-2015SA010164

PATIENT
  Age: 60 Year
  Sex: Male

DRUGS (19)
  1. PAROXETINE HYDROCHLORIDE. [Concomitant]
     Active Substance: PAROXETINE HYDROCHLORIDE
  2. ATORVASTATIN [Concomitant]
     Active Substance: ATORVASTATIN
     Route: 065
  3. TEMAZEPAM. [Concomitant]
     Active Substance: TEMAZEPAM
     Route: 065
  4. GEMFIBROZIL. [Concomitant]
     Active Substance: GEMFIBROZIL
     Route: 065
  5. LEVOTHYROXINE. [Concomitant]
     Active Substance: LEVOTHYROXINE
     Route: 065
  6. CLOPIDOGREL [Concomitant]
     Active Substance: CLOPIDOGREL BISULFATE
     Route: 065
  7. AUBAGIO [Suspect]
     Active Substance: TERIFLUNOMIDE
     Indication: MULTIPLE SCLEROSIS
     Route: 048
     Dates: start: 20150116
  8. FENOFIBRATE. [Concomitant]
     Active Substance: FENOFIBRATE
     Route: 065
  9. BACLOFEN. [Concomitant]
     Active Substance: BACLOFEN
     Route: 065
  10. AUBAGIO [Suspect]
     Active Substance: TERIFLUNOMIDE
     Indication: MULTIPLE SCLEROSIS
     Route: 048
     Dates: start: 2015
  11. AMANTADINE. [Concomitant]
     Active Substance: AMANTADINE HYDROCHLORIDE
     Route: 065
  12. TECFIDERA [Concomitant]
     Active Substance: DIMETHYL FUMARATE
     Route: 065
  13. DONEPEZIL. [Concomitant]
     Active Substance: DONEPEZIL
     Route: 065
  14. LOSARTAN POTASSIUM. [Concomitant]
     Active Substance: LOSARTAN POTASSIUM
     Route: 065
  15. FLUTICASONE. [Concomitant]
     Active Substance: FLUTICASONE
     Route: 065
  16. SERTRALINE [Concomitant]
     Active Substance: SERTRALINE HYDROCHLORIDE
     Route: 065
  17. METOPROLOL TARTRATE. [Concomitant]
     Active Substance: METOPROLOL TARTRATE
     Route: 065
  18. TRAMADOL HYDROCHLORIDE. [Concomitant]
     Active Substance: TRAMADOL HYDROCHLORIDE
     Route: 065
  19. AMLODIPINE [Concomitant]
     Active Substance: AMLODIPINE BESYLATE
     Route: 065

REACTIONS (10)
  - Cerebrovascular accident [Unknown]
  - Memory impairment [Not Recovered/Not Resolved]
  - Fatigue [Unknown]
  - Amnesia [Not Recovered/Not Resolved]
  - Drug dose omission [Unknown]
  - Headache [Unknown]
  - Hypersomnia [Unknown]
  - Depression [Unknown]
  - Visual impairment [Unknown]
  - Blood pressure increased [Unknown]
